FAERS Safety Report 18879667 (Version 1)
Quarter: 2021Q1

REPORT INFORMATION
  Report Type: Spontaneous
  Country: US (occurrence: US)
  Receive Date: 20210211
  Receipt Date: 20210211
  Transmission Date: 20210420
  Serious: No
  Sender: FDA-Public Use
  Company Number: US-MYLANLABS-2021M1007570

PATIENT
  Age: 74 Year
  Sex: Female
  Weight: 86.64 kg

DRUGS (2)
  1. TELMISARTAN AND AMLODIPINE TABLETS [Suspect]
     Active Substance: AMLODIPINE BESYLATE\TELMISARTAN
     Indication: PRODUCT USED FOR UNKNOWN INDICATION
     Dosage: 40/10 MG, ONCE A DAY BY MOUTH
  2. LEVOTHYROXINE. [Concomitant]
     Active Substance: LEVOTHYROXINE
     Dosage: 0.75 MICROGRAM

REACTIONS (1)
  - Off label use [Unknown]
